FAERS Safety Report 7476196-4 (Version None)
Quarter: 2011Q2

REPORT INFORMATION
  Report Type: 
  Country: None (occurrence: None)
  Receive Date: 20110512
  Receipt Date: 20110503
  Transmission Date: 20111010
  Serious: Yes (Hospitalization)
  Sender: FDA-Public Use
  Company Number: GB-WATSON-2011-06510

PATIENT
  Age: 51 Year
  Sex: Female

DRUGS (4)
  1. SUMATRIPTAN SUCCINATE [Suspect]
     Indication: MIGRAINE
     Dosage: UNK
  2. CODEINE SULFATE [Suspect]
     Indication: MUSCULOSKELETAL PAIN
     Dosage: UNK
  3. ACETAMINOPHEN [Suspect]
     Indication: MUSCULOSKELETAL PAIN
     Dosage: UNK
  4. PIZOTIFEN [Suspect]
     Indication: MIGRAINE
     Dosage: UNK

REACTIONS (4)
  - CEREBRAL VASOCONSTRICTION [None]
  - HEADACHE [None]
  - MIGRAINE [None]
  - BALINT'S SYNDROME [None]
